FAERS Safety Report 7744014-2 (Version None)
Quarter: 2011Q3

REPORT INFORMATION
  Report Type: 
  Country: None (occurrence: None)
  Receive Date: 20110912
  Receipt Date: 20110907
  Transmission Date: 20111222
  Serious: Yes (Other)
  Sender: FDA-Public Use
  Company Number: US-ABBOTT-11P-163-0841753-00

PATIENT
  Sex: Female
  Weight: 52.21 kg

DRUGS (7)
  1. HUMIRA [Suspect]
     Indication: RHEUMATOID ARTHRITIS
     Dates: start: 20080501
  2. METHOTREXATE [Concomitant]
     Indication: RHEUMATOID ARTHRITIS
  3. EXELON [Concomitant]
     Indication: PARKINSON'S DISEASE
     Dosage: PATCH
     Dates: start: 20110601
  4. CYMBALTA [Concomitant]
     Indication: NEURALGIA
  5. PREDNISONE [Concomitant]
     Indication: RHEUMATOID ARTHRITIS
  6. FOLIC ACID [Concomitant]
     Indication: VITAMIN SUPPLEMENTATION
  7. OXYCODONE HCL [Concomitant]
     Indication: RHEUMATOID ARTHRITIS

REACTIONS (1)
  - PARKINSON'S DISEASE [None]
